FAERS Safety Report 15128579 (Version 1)
Quarter: 2018Q3

REPORT INFORMATION
  Report Type: Spontaneous
  Country: IT (occurrence: IT)
  Receive Date: 20180711
  Receipt Date: 20180711
  Transmission Date: 20181010
  Serious: Yes (Life-Threatening, Hospitalization, Other)
  Sender: FDA-Public Use
  Company Number: IT-WEST-WARD PHARMACEUTICALS CORP.-IT-H14001-17-04393

PATIENT
  Age: 16 Year
  Sex: Female
  Weight: 85 kg

DRUGS (30)
  1. CYTARABINE. [Suspect]
     Active Substance: CYTARABINE
     Indication: AUTOLOGOUS BONE MARROW TRANSPLANTATION THERAPY
     Route: 042
     Dates: start: 20170526, end: 20170529
  2. FOTEMUSTINE [Suspect]
     Active Substance: FOTEMUSTINE
     Route: 042
     Dates: start: 20170525
  3. LASIX [Concomitant]
     Active Substance: FUROSEMIDE
     Indication: PRODUCT USED FOR UNKNOWN INDICATION
     Route: 042
     Dates: start: 20170523, end: 20170620
  4. LASIX [Concomitant]
     Active Substance: FUROSEMIDE
     Route: 065
     Dates: start: 20170526, end: 20170531
  5. EMEND [Concomitant]
     Active Substance: APREPITANT
     Indication: PRODUCT USED FOR UNKNOWN INDICATION
     Route: 065
     Dates: start: 20170523, end: 20170527
  6. LASIX [Concomitant]
     Active Substance: FUROSEMIDE
     Route: 048
     Dates: start: 20170523, end: 20170606
  7. LASIX [Concomitant]
     Active Substance: FUROSEMIDE
     Route: 042
     Dates: start: 20170524, end: 20170527
  8. DEURSIL [Concomitant]
     Active Substance: URSODIOL
     Route: 065
  9. ALLOPURINOL. [Concomitant]
     Active Substance: ALLOPURINOL
     Indication: PRODUCT USED FOR UNKNOWN INDICATION
     Route: 065
     Dates: start: 20170526, end: 20170531
  10. ETOPOSIDE. [Suspect]
     Active Substance: ETOPOSIDE
     Indication: AUTOLOGOUS BONE MARROW TRANSPLANTATION THERAPY
     Route: 042
     Dates: start: 20170526, end: 20170529
  11. ETOPOSIDE. [Suspect]
     Active Substance: ETOPOSIDE
     Route: 042
     Dates: start: 20170529
  12. DEURSIL [Concomitant]
     Active Substance: URSODIOL
     Indication: PRODUCT USED FOR UNKNOWN INDICATION
     Route: 048
     Dates: start: 20170523, end: 20170623
  13. CYTARABINE. [Suspect]
     Active Substance: CYTARABINE
     Indication: PRODUCT USED FOR UNKNOWN INDICATION
     Route: 042
     Dates: start: 20170529
  14. LASIX [Concomitant]
     Active Substance: FUROSEMIDE
     Route: 065
  15. LASIX [Concomitant]
     Active Substance: FUROSEMIDE
     Route: 065
  16. ZOVIRAX [Concomitant]
     Active Substance: ACYCLOVIR
     Indication: PRODUCT USED FOR UNKNOWN INDICATION
     Route: 048
     Dates: start: 20170523, end: 20170529
  17. CIPROXIN [Concomitant]
     Active Substance: CIPROFLOXACIN
     Indication: PRODUCT USED FOR UNKNOWN INDICATION
     Route: 048
     Dates: start: 20170523, end: 20170606
  18. NYSTATIN. [Concomitant]
     Active Substance: NYSTATIN
     Indication: PRODUCT USED FOR UNKNOWN INDICATION
     Route: 048
     Dates: start: 20170523, end: 20170623
  19. FLUCONAZOLE. [Concomitant]
     Active Substance: FLUCONAZOLE
     Indication: PRODUCT USED FOR UNKNOWN INDICATION
     Route: 065
     Dates: start: 20170523, end: 20170606
  20. MAGNESIUM CHLORIDE. [Concomitant]
     Active Substance: MAGNESIUM CHLORIDE
     Indication: PRODUCT USED FOR UNKNOWN INDICATION
     Route: 065
     Dates: start: 20170525
  21. ALKERAN [Suspect]
     Active Substance: MELPHALAN
     Indication: AUTOLOGOUS BONE MARROW TRANSPLANTATION THERAPY
     Route: 042
     Dates: start: 20170530, end: 20170530
  22. FOTEMUSTINE [Suspect]
     Active Substance: FOTEMUSTINE
     Indication: AUTOLOGOUS BONE MARROW TRANSPLANTATION THERAPY
     Route: 042
     Dates: start: 20170524, end: 20170525
  23. LASIX [Concomitant]
     Active Substance: FUROSEMIDE
     Route: 048
     Dates: start: 20170523, end: 20170623
  24. LASIX [Concomitant]
     Active Substance: FUROSEMIDE
     Route: 065
     Dates: start: 20170523, end: 20170529
  25. RANITIDINE. [Concomitant]
     Active Substance: RANITIDINE
     Indication: PRODUCT USED FOR UNKNOWN INDICATION
     Route: 065
     Dates: start: 20170523, end: 20170602
  26. HEPARIN [Concomitant]
     Active Substance: HEPARIN SODIUM
     Indication: PRODUCT USED FOR UNKNOWN INDICATION
     Route: 058
     Dates: start: 20170523, end: 20170623
  27. LASIX [Concomitant]
     Active Substance: FUROSEMIDE
     Route: 065
  28. LASIX [Concomitant]
     Active Substance: FUROSEMIDE
     Route: 042
     Dates: start: 20170523, end: 20170602
  29. ALOXI [Concomitant]
     Active Substance: PALONOSETRON HYDROCHLORIDE
     Indication: PRODUCT USED FOR UNKNOWN INDICATION
     Route: 042
     Dates: start: 20170524, end: 20170527
  30. POTASSIUM CHLORIDE. [Concomitant]
     Active Substance: POTASSIUM CHLORIDE
     Indication: PRODUCT USED FOR UNKNOWN INDICATION
     Route: 065
     Dates: start: 20170524

REACTIONS (14)
  - Product use in unapproved indication [Unknown]
  - Faeces soft [Recovering/Resolving]
  - Pyrexia [Recovered/Resolved]
  - Oropharyngeal pain [Recovered/Resolved]
  - Drug administered to patient of inappropriate age [Unknown]
  - Thrombocytopenia [Recovered/Resolved]
  - Mucosal inflammation [Recovering/Resolving]
  - Tonsillar haemorrhage [Unknown]
  - Vomiting [Recovered/Resolved]
  - Tonsillitis [Unknown]
  - Off label use [Recovered/Resolved]
  - Erythema [Recovered/Resolved]
  - Cough [Recovered/Resolved]
  - Neutropenia [Recovered/Resolved]

NARRATIVE: CASE EVENT DATE: 2017
